FAERS Safety Report 4964322-8 (Version None)
Quarter: 2006Q1

REPORT INFORMATION
  Report Type: 
  Country: None (occurrence: None)
  Receive Date: 20060331
  Receipt Date: 20060314
  Transmission Date: 20060701
  Serious: Yes (Other)
  Sender: FDA-Public Use
  Company Number: GBT041001702

PATIENT
  Age: 52 Year
  Sex: Female
  Weight: 117 kg

DRUGS (6)
  1. GEMCITABINE HYDROCHLORIDE (GEMCITABINE HYDROCHLORIDE) VIAL [Suspect]
     Indication: BREAST CANCER
     Dosage: 2000 MG,, 2000 MG,
     Dates: start: 20040910, end: 20040910
  2. GEMCITABINE HYDROCHLORIDE (GEMCITABINE HYDROCHLORIDE) VIAL [Suspect]
     Indication: BREAST CANCER
     Dosage: 2000 MG,, 2000 MG,
     Dates: start: 20040917, end: 20040917
  3. PACLITAXEL [Suspect]
     Indication: BREAST CANCER
     Dosage: 350 MG,
     Dates: start: 20040910, end: 20040910
  4. EPIRUBICIN [Suspect]
     Indication: BREAST CANCER
     Dosage: 180 MG,
     Dates: start: 20040617, end: 20040820
  5. CYCLOPHOSPHAMIDE [Suspect]
     Indication: BREAST CANCER
     Dosage: 1200 MG,
     Dates: start: 20040617, end: 20040820
  6. DEXAMETHASONE TAB [Concomitant]

REACTIONS (1)
  - ERYTHEMA NODOSUM [None]
